FAERS Safety Report 6907759-X (Version None)
Quarter: 2010Q3

REPORT INFORMATION
  Report Type: 
  Country: None (occurrence: None)
  Receive Date: 20100805
  Receipt Date: 20100722
  Transmission Date: 20110219
  Serious: Yes (Hospitalization, Other)
  Sender: FDA-Public Use
  Company Number: JP-RANBAXY-2010RR-35318

PATIENT
  Age: 66 Year
  Sex: Female
  Weight: 45 kg

DRUGS (7)
  1. ATENOLOL [Suspect]
     Indication: HYPERTENSION
     Dosage: 50 MG, UNK
  2. REMIFENTANIL [Suspect]
     Indication: ANAESTHESIA
     Dosage: 0.25 UG/KG/MIN
  3. REMIFENTANIL [Suspect]
     Dosage: 0.2-0.3 UG/KG/MIN
  4. PROPOFOL [Concomitant]
     Indication: ANAESTHESIA
     Dosage: 50 MG, UNK
     Route: 042
  5. ROCURONIUM BROMIDE [Concomitant]
     Indication: ANAESTHESIA
     Dosage: 35 MG, UNK
     Route: 042
  6. SEVOFLURANE [Concomitant]
     Indication: MAINTENANCE OF ANAESTHESIA
     Dosage: 1.5 %, UNK
  7. OXYGEN [Concomitant]
     Dosage: 40 %, UNK

REACTIONS (2)
  - CARDIAC ARREST [None]
  - DRUG INTERACTION [None]
